FAERS Safety Report 18491004 (Version 1)
Quarter: 2020Q4

REPORT INFORMATION
  Report Type: Report from Study
  Country: US (occurrence: US)
  Receive Date: 20201111
  Receipt Date: 20201111
  Transmission Date: 20210114
  Serious: Yes (Hospitalization, Other)
  Sender: FDA-Public Use
  Company Number: US-AMGEN-USASL2020167581

PATIENT
  Age: 79 Year
  Sex: Female

DRUGS (1)
  1. PROLIA [Suspect]
     Active Substance: DENOSUMAB
     Indication: OSTEOPOROSIS POSTMENOPAUSAL
     Dosage: 60 MILLIGRAM, Q6MO
     Route: 058

REACTIONS (16)
  - Joint lock [Recovered/Resolved]
  - Fall [Unknown]
  - Pain [Unknown]
  - Blood pressure abnormal [Not Recovered/Not Resolved]
  - Wound infection [Unknown]
  - Paraesthesia [Unknown]
  - Exercise tolerance decreased [Unknown]
  - Food craving [Not Recovered/Not Resolved]
  - Mobility decreased [Recovered/Resolved]
  - Dizziness [Unknown]
  - Fatigue [Unknown]
  - Musculoskeletal stiffness [Unknown]
  - Hypoaesthesia [Unknown]
  - Pollakiuria [Unknown]
  - Asthenia [Not Recovered/Not Resolved]
  - Pain in extremity [Not Recovered/Not Resolved]

NARRATIVE: CASE EVENT DATE: 2020
